FAERS Safety Report 18629931 (Version 1)
Quarter: 2020Q4

REPORT INFORMATION
  Report Type: Spontaneous
  Country: US (occurrence: US)
  Receive Date: 20201217
  Receipt Date: 20201217
  Transmission Date: 20210114
  Serious: Yes (Life-Threatening, Other)
  Sender: FDA-Public Use
  Company Number: US-BAYER-2020-271222

PATIENT

DRUGS (1)
  1. ASPIRIN (CARDIO) [Suspect]
     Active Substance: ASPIRIN

REACTIONS (2)
  - Drug hypersensitivity [None]
  - Anaphylactic reaction [None]
